FAERS Safety Report 25059056 (Version 1)
Quarter: 2025Q1

REPORT INFORMATION
  Report Type: Spontaneous
  Country: US (occurrence: None)
  Receive Date: 20250307
  Receipt Date: 20250307
  Transmission Date: 20250409
  Serious: No
  Sender: FDA-CTU
  Company Number: None

PATIENT

DRUGS (1)
  1. OPIUM [Suspect]
     Active Substance: OPIUM

REACTIONS (3)
  - Drug ineffective [None]
  - Product use issue [None]
  - Therapy interrupted [None]

NARRATIVE: CASE EVENT DATE: 20250307
